FAERS Safety Report 4680258-4 (Version None)
Quarter: 2005Q2

REPORT INFORMATION
  Report Type: 
  Country: None (occurrence: None)
  Receive Date: 20050525
  Receipt Date: 20050513
  Transmission Date: 20051028
  Serious: Yes (Other)
  Sender: FDA-Public Use
  Company Number: 200510135BNE

PATIENT
  Age: 3 Year
  Sex: Male
  Weight: 14.8 kg

DRUGS (17)
  1. KOGENATE FS [Suspect]
     Dosage: SEE IMAGE
     Dates: start: 20030803
  2. KOGENATE FS [Suspect]
     Dosage: SEE IMAGE
     Dates: start: 20031007
  3. KOGENATE FS [Suspect]
     Dosage: SEE IMAGE
     Dates: start: 20040523
  4. KOGENATE FS [Suspect]
     Dosage: SEE IMAGE
     Dates: start: 20040608
  5. KOGENATE FS [Suspect]
     Dosage: SEE IMAGE
     Dates: start: 20040612
  6. KOGENATE FS [Suspect]
     Dosage: SEE IMAGE
     Dates: start: 20040625
  7. KOGENATE FS [Suspect]
     Dosage: SEE IMAGE
     Dates: start: 20040702
  8. KOGENATE FS [Suspect]
     Dosage: SEE IMAGE
     Dates: start: 20040805
  9. KOGENATE FS [Suspect]
     Dosage: SEE IMAGE
     Dates: start: 20040819
  10. KOGENATE FS [Suspect]
     Dosage: SEE IMAGE
     Dates: start: 20050113
  11. KOGENATE FS [Suspect]
     Dosage: SEE IMAGE
     Dates: start: 20050202
  12. KOGENATE FS [Suspect]
     Dosage: SEE IMAGE
     Dates: start: 20050210
  13. KOGENATE FS [Suspect]
     Dosage: SEE IMAGE
     Dates: start: 20050216
  14. KOGENATE FS [Suspect]
  15. KOGENATE FS [Suspect]
  16. KOGENATE FS [Suspect]
  17. KOGENATE FS [Suspect]

REACTIONS (2)
  - FACTOR VIII INHIBITION [None]
  - THERAPEUTIC RESPONSE DECREASED [None]
